FAERS Safety Report 24612088 (Version 2)
Quarter: 2024Q4

REPORT INFORMATION
  Report Type: Spontaneous
  Country: PL (occurrence: PL)
  Receive Date: 20241113
  Receipt Date: 20241128
  Transmission Date: 20250114
  Serious: Yes (Other)
  Sender: ABBVIE
  Company Number: PL-ABBVIE-5995323

PATIENT
  Age: 31 Year
  Sex: Female

DRUGS (12)
  1. VENETOCLAX [Suspect]
     Active Substance: VENETOCLAX
     Indication: Non-Hodgkin^s lymphoma
     Dosage: 400 (UNITS NOT PROVIDED)
     Route: 048
     Dates: start: 20240531, end: 20240617
  2. VENETOCLAX [Suspect]
     Active Substance: VENETOCLAX
     Indication: Non-Hodgkin^s lymphoma
     Dosage: 400 (UNITS NOT PROVIDED)
     Route: 048
     Dates: start: 2022
  3. VENETOCLAX [Suspect]
     Active Substance: VENETOCLAX
     Indication: Non-Hodgkin^s lymphoma
     Dosage: 400 (UNITS NOT PROVIDED)
     Route: 048
     Dates: start: 2024
  4. VENETOCLAX [Suspect]
     Active Substance: VENETOCLAX
     Indication: Non-Hodgkin^s lymphoma
     Dosage: 400 (UNITS NOT PROVIDED)
     Route: 048
     Dates: start: 2023
  5. RUXOLITINIB [Concomitant]
     Active Substance: RUXOLITINIB
     Indication: Immunosuppression
     Route: 065
     Dates: start: 2024
  6. BORTEZOMIB [Concomitant]
     Active Substance: BORTEZOMIB
     Indication: Acute myeloid leukaemia recurrent
     Dates: start: 2023
  7. BORTEZOMIB [Concomitant]
     Active Substance: BORTEZOMIB
     Indication: Acute myeloid leukaemia recurrent
     Route: 065
     Dates: start: 2023
  8. CYTARABINE [Concomitant]
     Active Substance: CYTARABINE
     Indication: Acute myeloid leukaemia recurrent
     Route: 065
     Dates: start: 2024
  9. IDARUBICIN [Concomitant]
     Active Substance: IDARUBICIN
     Indication: Acute myeloid leukaemia recurrent
     Route: 065
     Dates: start: 2024
  10. DARATUMUMAB [Concomitant]
     Active Substance: DARATUMUMAB
     Indication: Acute myeloid leukaemia recurrent
     Dosage: 2 CYCLES
     Route: 065
     Dates: start: 2023
  11. CLADRIBINE [Concomitant]
     Active Substance: CLADRIBINE
     Indication: Acute myeloid leukaemia recurrent
     Dates: start: 2024
  12. AZACITIDINE [Concomitant]
     Active Substance: AZACITIDINE
     Indication: Acute myeloid leukaemia recurrent
     Dosage: 32.5 MG/M2
     Route: 065
     Dates: start: 2024

REACTIONS (10)
  - Cardiac failure [Unknown]
  - Off label use [Unknown]
  - Chimerism [Unknown]
  - EZH2 gene mutation [Unknown]
  - Acute myeloid leukaemia recurrent [Unknown]
  - Acute myeloid leukaemia [Unknown]
  - Graft versus host disease in liver [Unknown]
  - Graft versus host disease in gastrointestinal tract [Unknown]
  - K-ras gene mutation [Unknown]
  - RUNX1 gene mutation [Unknown]

NARRATIVE: CASE EVENT DATE: 20230101
